FAERS Safety Report 24208739 (Version 2)
Quarter: 2024Q4

REPORT INFORMATION
  Report Type: Spontaneous
  Country: US (occurrence: US)
  Receive Date: 20240814
  Receipt Date: 20241004
  Transmission Date: 20250114
  Serious: Yes (Disabling, Other)
  Sender: REGENERON
  Company Number: US-REGENERON PHARMACEUTICALS, INC.-2024-109369

PATIENT
  Sex: Male

DRUGS (4)
  1. EYLEA [Suspect]
     Active Substance: AFLIBERCEPT
     Indication: Neovascular age-related macular degeneration
     Dosage: 2 MG EVERY 12 WEEKS IN RIGHT EYE (FORMULATION: GERRESHEIMER PFS), 40 MG/ML
     Dates: start: 20221006, end: 20221006
  2. EYLEA [Suspect]
     Active Substance: AFLIBERCEPT
     Indication: Choroidal neovascularisation
     Dosage: 2 MG, 7 WEEKS FROM THE FIRST INJECTION,RIGHT EYE (FORMULATION: GERRESHEIMER PFS), 40 MG/ML
     Dates: start: 20221128, end: 20221128
  3. EYLEA [Suspect]
     Active Substance: AFLIBERCEPT
     Dosage: 2 MG IN RIGHT EYE, 10 WEEKS FROM THE SECOND INJECTION, (FORMULATION: GERRESHEIMER PFS)40MG/ML
     Dates: start: 20230220, end: 20230220
  4. EYLEA [Suspect]
     Active Substance: AFLIBERCEPT
     Dosage: 2 MG IN RIGHT EYE, 15-16 WEEKS,(FORMULATION: GERRESHEIMER PFS), 40MG/ML
     Dates: start: 20240724, end: 20240724

REACTIONS (4)
  - Blindness unilateral [Not Recovered/Not Resolved]
  - Endophthalmitis [Recovering/Resolving]
  - Ocular discomfort [Not Recovered/Not Resolved]
  - Wrong technique in product usage process [Unknown]

NARRATIVE: CASE EVENT DATE: 20221006
